FAERS Safety Report 20340903 (Version 1)
Quarter: 2022Q1

REPORT INFORMATION
  Report Type: Spontaneous
  Country: US (occurrence: None)
  Receive Date: 20220117
  Receipt Date: 20220117
  Transmission Date: 20220424
  Serious: Yes (Other)
  Sender: FDA-Public Use
  Company Number: 2022A015668

PATIENT

DRUGS (2)
  1. LYNPARZA [Suspect]
     Active Substance: OLAPARIB
     Indication: Hormone-refractory prostate cancer
     Route: 048
  2. XOFIGO [Suspect]
     Active Substance: RADIUM RA-223 DICHLORIDE
     Dosage: 223
     Route: 065

REACTIONS (2)
  - Haematotoxicity [Unknown]
  - Haemoglobin decreased [Unknown]
